FAERS Safety Report 7096172-3 (Version None)
Quarter: 2010Q4

REPORT INFORMATION
  Report Type: 
  Country: None (occurrence: None)
  Receive Date: 20101111
  Receipt Date: 20101101
  Transmission Date: 20110411
  Serious: Yes (Hospitalization, Disabling, Other)
  Sender: FDA-Public Use
  Company Number: US-JNJFOC-20100901748

PATIENT
  Sex: Male
  Weight: 181.44 kg

DRUGS (3)
  1. REMICADE [Suspect]
     Indication: PRODUCT USED FOR UNKNOWN INDICATION
     Route: 042
  2. REMICADE [Suspect]
     Dosage: 1/2 THE DOSE
     Route: 042
  3. REMICADE [Suspect]
     Route: 042

REACTIONS (3)
  - EXTRADURAL ABSCESS [None]
  - MONOPLEGIA [None]
  - STAPHYLOCOCCAL INFECTION [None]
